FAERS Safety Report 5681237-0 (Version None)
Quarter: 2008Q1

REPORT INFORMATION
  Report Type: 
  Country: None (occurrence: None)
  Receive Date: 20080326
  Receipt Date: 20070822
  Transmission Date: 20080703
  Serious: Yes (Hospitalization)
  Sender: FDA-Public Use
  Company Number: US-BAYER-US-2007-000930

PATIENT
  Age: 26 Year
  Sex: Female
  Weight: 97 kg

DRUGS (1)
  1. MIRENA [Suspect]
     Indication: CONTRACEPTION
     Route: 015
     Dates: start: 20070103, end: 20070103

REACTIONS (3)
  - ABDOMINAL PAIN [None]
  - HYPERHIDROSIS [None]
  - VOMITING [None]
